FAERS Safety Report 21591730 (Version 2)
Quarter: 2022Q4

REPORT INFORMATION
  Report Type: Spontaneous
  Country: US (occurrence: US)
  Receive Date: 20221114
  Receipt Date: 20221229
  Transmission Date: 20230113
  Serious: No
  Sender: FDA-Public Use
  Company Number: US-JNJFOC-20221121342

PATIENT
  Sex: Female

DRUGS (13)
  1. OPSUMIT [Suspect]
     Active Substance: MACITENTAN
     Indication: Product used for unknown indication
     Route: 048
     Dates: start: 20191126
  2. OPSUMIT [Suspect]
     Active Substance: MACITENTAN
     Route: 048
  3. OMEPRAZOLE [Concomitant]
     Active Substance: OMEPRAZOLE
     Indication: Gastrooesophageal reflux disease
     Dates: start: 20160129
  4. LOSARTAN [Concomitant]
     Active Substance: LOSARTAN
     Indication: Hypertension
  5. CARVEDILOL [Concomitant]
     Active Substance: CARVEDILOL
     Dates: start: 202112
  6. LEVOTHYROXINE [Concomitant]
     Active Substance: LEVOTHYROXINE
     Indication: Thyroid disorder
  7. FUROSEMIDE [Concomitant]
     Active Substance: FUROSEMIDE
  8. FISH OIL [Concomitant]
     Active Substance: FISH OIL
  9. SYSTANE (HYPROMELLOSE 2910 (4000 MPA.S)) [Concomitant]
     Active Substance: HYPROMELLOSE 2910 (4000 MPA.S)
  10. VITAMIN C [Concomitant]
     Active Substance: ASCORBIC ACID
  11. HERBALS\TURMERIC [Concomitant]
     Active Substance: HERBALS\TURMERIC
  12. VITAMINS NOS [Concomitant]
     Active Substance: VITAMINS
  13. OXYGEN [Concomitant]
     Active Substance: OXYGEN

REACTIONS (1)
  - Bone pain [Unknown]
